FAERS Safety Report 23116100 (Version 2)
Quarter: 2023Q4

REPORT INFORMATION
  Report Type: Report from Study
  Country: US (occurrence: US)
  Receive Date: 20231027
  Receipt Date: 20231130
  Transmission Date: 20240109
  Serious: Yes (Other)
  Sender: FDA-Public Use
  Company Number: US-PFIZER INC-202300347984

PATIENT
  Age: 69 Year
  Sex: Male

DRUGS (1)
  1. VYNDAMAX [Suspect]
     Active Substance: TAFAMIDIS
     Indication: Cardiomyopathy
     Dosage: 61 MG, 1X/DAY
     Route: 048

REACTIONS (8)
  - Brain injury [Unknown]
  - Loss of consciousness [Unknown]
  - Blindness [Unknown]
  - Head injury [Unknown]
  - Fall [Unknown]
  - Amnesia [Unknown]
  - Skin irritation [Unknown]
  - Product dose omission issue [Unknown]
